FAERS Safety Report 9630483 (Version 3)
Quarter: 2013Q4

REPORT INFORMATION
  Report Type: Spontaneous
  Country: US (occurrence: US)
  Receive Date: 20131018
  Receipt Date: 20131229
  Transmission Date: 20140711
  Serious: Yes (Other)
  Sender: FDA-Public Use
  Company Number: US-009507513-1310USA005720

PATIENT
  Age: 49 Year
  Sex: Female

DRUGS (1)
  1. VICTRELIS [Suspect]
     Dosage: 800 MG, TID
     Route: 048
     Dates: start: 20130409, end: 2013

REACTIONS (2)
  - Leukopenia [Unknown]
  - Anaemia [Unknown]
